FAERS Safety Report 4699151-6 (Version None)
Quarter: 2005Q2

REPORT INFORMATION
  Report Type: 
  Country: None (occurrence: None)
  Receive Date: 20050623
  Receipt Date: 20050623
  Transmission Date: 20051028
  Serious: Yes (Hospitalization, Other)
  Sender: FDA-Public Use
  Company Number: None

PATIENT
  Sex: Male
  Weight: 83.3 kg

DRUGS (1)
  1. FLUOROURACIL [Suspect]
     Indication: GASTRIC CANCER
     Dates: start: 20050406, end: 20050517

REACTIONS (3)
  - BACTERAEMIA [None]
  - CATHETER RELATED INFECTION [None]
  - INFUSION SITE PAIN [None]
